FAERS Safety Report 18480594 (Version 1)
Quarter: 2020Q4

REPORT INFORMATION
  Report Type: Spontaneous
  Country: GB (occurrence: GB)
  Receive Date: 20201109
  Receipt Date: 20201109
  Transmission Date: 20210114
  Serious: Yes (Other)
  Sender: FDA-Public Use
  Company Number: GB-MYLANLABS-2020M1092583

PATIENT
  Age: 57 Year
  Sex: Male
  Weight: 87 kg

DRUGS (17)
  1. ACETYLSALICYLIC ACID [Concomitant]
     Active Substance: ASPIRIN
     Dosage: 1 DOSAGE FORM, QD
     Dates: start: 20200222, end: 20200907
  2. PARACETAMOL [Concomitant]
     Active Substance: ACETAMINOPHEN
     Dosage: TAKE 1 OR 2 4 TIMES/DAY
     Dates: start: 20200925
  3. ZOPICLONE [Concomitant]
     Active Substance: ZOPICLONE
     Dosage: 1 DOSAGE FORM, Q2D (EVERY OTHER NIGHT)
     Dates: start: 20200428
  4. NORTRIPTYLINE [Concomitant]
     Active Substance: NORTRIPTYLINE
     Dosage: ONE OR TWO ON
     Dates: start: 20200925
  5. AMLODIPINE [Concomitant]
     Active Substance: AMLODIPINE BESYLATE
     Dosage: 1 DOSAGE FORM, QD
     Dates: start: 20200826, end: 20200923
  6. QUININE [Concomitant]
     Active Substance: QUININE
     Dosage: 1 DOSAGE FORM, QD (EACH NIGHT)
     Dates: start: 20200930
  7. DIAZEPAM. [Concomitant]
     Active Substance: DIAZEPAM
     Dosage: 1 DOSAGE FORM, PRN (AS NECESSARY)
     Dates: start: 20200930
  8. SALBUTAMOL [Concomitant]
     Active Substance: ALBUTEROL
     Dosage: INHALE 2 DOSES (INHALE 2 DOSES AS NEEDED
     Dates: start: 20200222, end: 20200907
  9. OMEPRAZOLE. [Concomitant]
     Active Substance: OMEPRAZOLE
     Dosage: 2 DOSAGE FORM, QD
     Dates: start: 20200222, end: 20200907
  10. ANORO [Concomitant]
     Active Substance: UMECLIDINIUM BROMIDE\VILANTEROL TRIFENATATE
     Dosage: 1 DOSAGE FORM, QD (INHALE 1 DOSE DAILY)
     Dates: start: 20200930
  11. AMITRIPTYLINE HYDROCHLORIDE. [Concomitant]
     Active Substance: AMITRIPTYLINE HYDROCHLORIDE
     Dosage: 1 DOSAGE FORM, QD (AT NIGHT)
     Dates: start: 20200622, end: 20200907
  12. SILDENAFIL. [Concomitant]
     Active Substance: SILDENAFIL
     Dosage: USE AS DIRECTED
     Dates: start: 20200222, end: 20200907
  13. ULTIBRO BREEZHALER [Concomitant]
     Active Substance: GLYCOPYRRONIUM\INDACATEROL
     Dosage: 1 DOSAGE FORM, QD (INHALE 1 DOSE DAILY)
     Dates: start: 20200626, end: 20200907
  14. PREDNISOLONE. [Concomitant]
     Active Substance: PREDNISOLONE
     Dosage: TAKE 6 TOGETHER ONCE DAILY FOR 7 DAYS AS RESCUE
     Dates: start: 20200805, end: 20200812
  15. BISOPROLOL [Concomitant]
     Active Substance: BISOPROLOL
     Dosage: 1 DOSAGE FORM, QD
     Dates: start: 20201001
  16. TRAMADOL. [Suspect]
     Active Substance: TRAMADOL
     Indication: PRODUCT USED FOR UNKNOWN INDICATION
     Dosage: 50 MILLIGRAM
     Dates: start: 20200827
  17. BETAMETHASONE VALERATE. [Concomitant]
     Active Substance: BETAMETHASONE VALERATE
     Dosage: 2 DOSAGE FORM, QD (APPLY)
     Dates: start: 20200417, end: 20200907

REACTIONS (3)
  - Hypersensitivity [Unknown]
  - Dizziness [Unknown]
  - Illness [Unknown]

NARRATIVE: CASE EVENT DATE: 20201002
